FAERS Safety Report 25295314 (Version 4)
Quarter: 2025Q2

REPORT INFORMATION
  Report Type: Spontaneous
  Country: US (occurrence: US)
  Receive Date: 20250511
  Receipt Date: 20250625
  Transmission Date: 20250716
  Serious: Yes (Other)
  Sender: SANOFI AVENTIS
  Company Number: US-SA-2025SA131894

PATIENT
  Sex: Female
  Weight: 125.91 kg

DRUGS (35)
  1. DUPIXENT [Suspect]
     Active Substance: DUPILUMAB
     Indication: Asthma
     Dosage: 300 MG, QOW
     Route: 058
  2. XOLAIR [Concomitant]
     Active Substance: OMALIZUMAB
  3. FENOFIBRATE [Concomitant]
     Active Substance: FENOFIBRATE
  4. GAMUNEX [Concomitant]
     Active Substance: HUMAN IMMUNOGLOBULIN G
  5. GASTROCROM [Concomitant]
     Active Substance: CROMOLYN SODIUM
  6. HYDROXYZINE HYDROCHLORIDE [Concomitant]
     Active Substance: HYDROXYZINE HYDROCHLORIDE
  7. SODIUM CHLORIDE [Concomitant]
     Active Substance: SODIUM CHLORIDE
  8. EPIPEN [Concomitant]
     Active Substance: EPINEPHRINE
  9. LEVOTHYROXINE SODIUM [Concomitant]
     Active Substance: LEVOTHYROXINE SODIUM
  10. SODIUM CHLORIDE [Concomitant]
     Active Substance: SODIUM CHLORIDE
  11. KETOTIFEN FUMARATE [Concomitant]
     Active Substance: KETOTIFEN FUMARATE
  12. DICYCLOMINE HYDROCHLORIDE [Concomitant]
     Active Substance: DICYCLOMINE HYDROCHLORIDE
  13. MIRENA [Concomitant]
     Active Substance: LEVONORGESTREL
  14. LIDOCAINE [Concomitant]
     Active Substance: LIDOCAINE
  15. OMEPRAZOLE [Concomitant]
     Active Substance: OMEPRAZOLE
  16. VITAMINS NOS [Concomitant]
     Active Substance: VITAMINS
  17. ONDANSETRON [Concomitant]
     Active Substance: ONDANSETRON
  18. CORLANOR [Concomitant]
     Active Substance: IVABRADINE HYDROCHLORIDE
  19. EPINEPHRINE [Concomitant]
     Active Substance: EPINEPHRINE
  20. CYANOCOBALAMIN [Concomitant]
     Active Substance: CYANOCOBALAMIN
  21. PROBIOTICS NOS [Concomitant]
     Active Substance: PROBIOTICS NOS
  22. ROSUVASTATIN CALCIUM [Concomitant]
     Active Substance: ROSUVASTATIN CALCIUM
  23. ALBUTEROL SULFATE [Concomitant]
     Active Substance: ALBUTEROL SULFATE
  24. HYDROCORTISONE [Concomitant]
     Active Substance: HYDROCORTISONE
  25. CELECOXIB [Concomitant]
     Active Substance: CELECOXIB
  26. VITAMIN C [Concomitant]
     Active Substance: ASCORBIC ACID
  27. MONTELUKAST SODIUM [Concomitant]
     Active Substance: MONTELUKAST SODIUM
  28. CETIRIZINE HCL [Concomitant]
     Active Substance: CETIRIZINE HYDROCHLORIDE
  29. HEPARIN [Concomitant]
     Active Substance: HEPARIN SODIUM
  30. DIPHENHYDRAMINE [Concomitant]
     Active Substance: DIPHENHYDRAMINE
  31. DEXAMETHASONE [Concomitant]
     Active Substance: DEXAMETHASONE
  32. FAMOTIDINE [Concomitant]
     Active Substance: FAMOTIDINE
  33. ACETAMINOPHEN [Concomitant]
     Active Substance: ACETAMINOPHEN
  34. METHYLPREDNISOLONE [Concomitant]
     Active Substance: METHYLPREDNISOLONE
  35. OZEMPIC [Concomitant]
     Active Substance: SEMAGLUTIDE

REACTIONS (6)
  - Sialoadenitis [Unknown]
  - Escherichia infection [Unknown]
  - Norovirus infection [Unknown]
  - Condition aggravated [Unknown]
  - Gastric infection [Unknown]
  - Sinusitis [Unknown]
